FAERS Safety Report 7281088-X (Version None)
Quarter: 2011Q1

REPORT INFORMATION
  Report Type: 
  Country: None (occurrence: None)
  Receive Date: 20110208
  Receipt Date: 20110201
  Transmission Date: 20110831
  Serious: Yes (Other)
  Sender: FDA-Public Use
  Company Number: JP-MERCK-1101USA01464

PATIENT
  Age: 71 Year
  Sex: Female
  Weight: 68 kg

DRUGS (17)
  1. PREDONINE [Suspect]
     Indication: AUTOIMMUNE HEPATITIS
     Route: 048
  2. NORVASC [Concomitant]
     Indication: HYPERTENSION
     Route: 048
  3. METHYCOBAL [Concomitant]
     Route: 048
  4. COZAAR [Concomitant]
     Indication: HYPERTENSION
     Route: 048
  5. LOXONIN [Concomitant]
     Route: 061
  6. SINGULAIR [Concomitant]
     Indication: ASTHMA
     Route: 048
  7. SENNOSIDES [Concomitant]
     Route: 048
  8. KETOPROFEN [Concomitant]
     Route: 061
  9. MAGMITT [Concomitant]
     Route: 048
  10. ALFAROL [Concomitant]
     Route: 048
  11. SIMVASTATIN [Concomitant]
     Route: 048
  12. BASEN OD [Concomitant]
     Indication: DIABETES MELLITUS
     Route: 048
  13. STICKZENOL A [Concomitant]
     Route: 061
  14. PEPCID RPD [Concomitant]
     Route: 048
  15. FOSAMAX [Suspect]
     Indication: OSTEOPOROSIS
     Route: 048
  16. AMARYL [Concomitant]
     Indication: DIABETES MELLITUS
     Route: 048
  17. NAPAGELN [Concomitant]
     Route: 061

REACTIONS (1)
  - OSTEOMYELITIS [None]
